FAERS Safety Report 5708918-4 (Version None)
Quarter: 2008Q2

REPORT INFORMATION
  Report Type: 
  Country: None (occurrence: None)
  Receive Date: 20080416
  Receipt Date: 20080402
  Transmission Date: 20081010
  Serious: Yes (Hospitalization)
  Sender: FDA-Public Use
  Company Number: M-08-0355

PATIENT
  Age: 54 Year
  Sex: Female

DRUGS (3)
  1. DIVIGEL [Suspect]
     Indication: NERVOUSNESS
     Dosage: 1 MG, QD, TOPICAL
     Route: 061
     Dates: start: 20080317, end: 20080401
  2. ESTROGENS, UNK STRENGTH, UNK MFR [Suspect]
     Indication: NERVOUSNESS
     Dosage: ONCE, PARENTERAL
     Route: 051
     Dates: start: 20080229
  3. TOPROL-XL [Concomitant]

REACTIONS (5)
  - ANXIETY [None]
  - BREAST TENDERNESS [None]
  - CHEST DISCOMFORT [None]
  - FATIGUE [None]
  - VENTRICULAR EXTRASYSTOLES [None]
